FAERS Safety Report 5856476-6 (Version None)
Quarter: 2008Q3

REPORT INFORMATION
  Report Type: 
  Country: None (occurrence: None)
  Receive Date: 20080825
  Receipt Date: 20080523
  Transmission Date: 20090109
  Serious: No
  Sender: FDA-Public Use
  Company Number: A0729434A

PATIENT
  Age: 58 Year
  Sex: Male

DRUGS (6)
  1. VERAMYST [Suspect]
     Dosage: 4SPR PER DAY
     Route: 045
     Dates: start: 20080301
  2. ZYRTEC [Concomitant]
  3. METFORMIN [Concomitant]
  4. GLYBURIDE [Concomitant]
  5. ACYCLOVIR [Concomitant]
  6. ASPIRIN [Concomitant]

REACTIONS (1)
  - EPISTAXIS [None]
